FAERS Safety Report 12012140 (Version 1)
Quarter: 2016Q1

REPORT INFORMATION
  Report Type: Report from Study
  Country: US (occurrence: US)
  Receive Date: 20160205
  Receipt Date: 20160205
  Transmission Date: 20160526
  Serious: No
  Sender: FDA-Public Use
  Company Number: US-ABBVIE-15K-163-1451643-00

PATIENT
  Age: 66 Year
  Sex: Female
  Weight: 98.52 kg

DRUGS (10)
  1. METHOTREXATE [Concomitant]
     Active Substance: METHOTREXATE
     Indication: PSORIATIC ARTHROPATHY
     Dates: end: 201505
  2. HYDROCORTISONE. [Concomitant]
     Active Substance: HYDROCORTISONE
     Indication: PSORIASIS
     Route: 061
  3. MODAFINIL. [Concomitant]
     Active Substance: MODAFINIL
     Indication: ATTENTION DEFICIT/HYPERACTIVITY DISORDER
  4. HUMIRA [Suspect]
     Active Substance: ADALIMUMAB
     Indication: PSORIATIC ARTHROPATHY
     Route: 065
     Dates: start: 201501, end: 201505
  5. WELLBUTRIN [Concomitant]
     Active Substance: BUPROPION HYDROCHLORIDE
     Indication: ATTENTION DEFICIT/HYPERACTIVITY DISORDER
  6. LISINOPRIL HCTZ [Concomitant]
     Active Substance: HYDROCHLOROTHIAZIDE\LISINOPRIL
     Indication: HYPERTENSION
  7. CETIRIZINE [Concomitant]
     Active Substance: CETIRIZINE HYDROCHLORIDE
     Indication: HYPERSENSITIVITY
  8. METRONIDAZOLE. [Concomitant]
     Active Substance: METRONIDAZOLE
     Indication: PSORIASIS
     Route: 061
  9. MONTELUKAST [Concomitant]
     Active Substance: MONTELUKAST SODIUM
     Indication: HYPERSENSITIVITY
  10. FLUOCINONIDE. [Concomitant]
     Active Substance: FLUOCINONIDE
     Indication: PSORIASIS
     Route: 061

REACTIONS (4)
  - Respiratory rate decreased [Recovering/Resolving]
  - Dyspnoea [Recovering/Resolving]
  - Upper respiratory tract infection [Recovering/Resolving]
  - Sinusitis [Recovered/Resolved]

NARRATIVE: CASE EVENT DATE: 201504
